FAERS Safety Report 7781260-6 (Version None)
Quarter: 2011Q3

REPORT INFORMATION
  Report Type: 
  Country: None (occurrence: None)
  Receive Date: 20110927
  Receipt Date: 20110912
  Transmission Date: 20111222
  Serious: Yes (Hospitalization)
  Sender: FDA-Public Use
  Company Number: KW-WATSON-2011-15298

PATIENT
  Age: 39 Year
  Sex: Male

DRUGS (1)
  1. NANDROLONE DECANOATE (WATSON LABORATORIES) [Suspect]
     Indication: PRODUCT USED FOR UNKNOWN INDICATION
     Dosage: IM, 3 X /WEEK
     Route: 030

REACTIONS (4)
  - EMBOLIC STROKE [None]
  - DRUG ABUSE [None]
  - PERIPHERAL VASCULAR DISORDER [None]
  - CARDIOMYOPATHY [None]
